FAERS Safety Report 14853588 (Version 2)
Quarter: 2018Q3

REPORT INFORMATION
  Report Type: Report from Study
  Country: US (occurrence: US)
  Receive Date: 20180507
  Receipt Date: 20180906
  Transmission Date: 20181010
  Serious: Yes (Other)
  Sender: FDA-Public Use
  Company Number: PHEH2018US016700

PATIENT
  Age: 42 Year
  Sex: Female

DRUGS (1)
  1. GILENYA [Suspect]
     Active Substance: FINGOLIMOD HYDROCHLORIDE
     Indication: MULTIPLE SCLEROSIS
     Dosage: 0.5 MG, QD
     Route: 048
     Dates: start: 20180420

REACTIONS (6)
  - White blood cell count decreased [Unknown]
  - Lymphocyte count decreased [Unknown]
  - Bronchitis [Unknown]
  - Blepharospasm [Recovering/Resolving]
  - Head discomfort [Unknown]
  - Optic neuritis [Unknown]

NARRATIVE: CASE EVENT DATE: 20180423
